FAERS Safety Report 8023374-1 (Version None)
Quarter: 2012Q1

REPORT INFORMATION
  Report Type: 
  Country: None (occurrence: None)
  Receive Date: 20120104
  Receipt Date: 20111230
  Transmission Date: 20120608
  Serious: Yes (Other)
  Sender: FDA-Public Use
  Company Number: BE-PFIZER INC-2012000165

PATIENT
  Age: 58 Year
  Sex: Female

DRUGS (11)
  1. SOMAVERT [Suspect]
     Dosage: 10 MG, 1X/DAY
     Dates: start: 20111125
  2. BEFACT FORTE [Concomitant]
     Dosage: 1X/DAY
     Route: 048
  3. SOMATOSTATIN [Concomitant]
     Dosage: MONTHLY
  4. GLUCOPHAGE [Concomitant]
     Dosage: 850 MG, 2X/DAY
     Route: 048
  5. PRAVASTATIN [Concomitant]
     Dosage: 40 MG, 1X/DAY
     Route: 048
  6. ACCUPRIL [Concomitant]
     Dosage: 5 MG, 1X/DAY
     Route: 048
  7. CLOZAN [Concomitant]
     Dosage: 10 MG, UNK
     Route: 048
  8. CO-ENZYME Q-10/LECITHIN/LEMON BIOFLAVONOIDS/QUERCETIN [Concomitant]
     Dosage: 1X/DAY
     Route: 048
  9. NOVOLOG MIX 70/30 [Concomitant]
  10. SERTRALINE HYDROCHLORIDE [Concomitant]
     Dosage: 1X/DAY
     Route: 048
  11. INDERAL LA [Concomitant]
     Dosage: 160 MG, 1X/DAY
     Route: 048

REACTIONS (4)
  - FATIGUE [None]
  - HYPERHIDROSIS [None]
  - MALAISE [None]
  - HYPOGLYCAEMIA [None]
